FAERS Safety Report 16342622 (Version 3)
Quarter: 2021Q2

REPORT INFORMATION
  Report Type: Spontaneous
  Country: FR (occurrence: FR)
  Receive Date: 20190522
  Receipt Date: 20210415
  Transmission Date: 20210716
  Serious: Yes (Hospitalization)
  Sender: FDA-Public Use
  Company Number: FR-PFIZER INC-2019209466

PATIENT
  Age: 75 Year
  Sex: Male

DRUGS (9)
  1. CARBOPLATIN. [Suspect]
     Active Substance: CARBOPLATIN
     Dosage: 150 MG, UNK
     Route: 042
     Dates: start: 20180306, end: 20181010
  2. AVASTIN [Suspect]
     Active Substance: BEVACIZUMAB
     Dosage: UNK
     Route: 042
     Dates: start: 20180306, end: 20181010
  3. MEDROL [Concomitant]
     Active Substance: METHYLPREDNISOLONE
     Dosage: UNK
  4. ZOPHREN [ONDANSETRON] [Concomitant]
     Active Substance: ONDANSETRON
     Dosage: UNK
  5. DUROGESIC [Concomitant]
     Active Substance: FENTANYL
     Dosage: 12 MG, UNK
  6. OXYNORMORO [Concomitant]
     Active Substance: OXYCODONE HYDROCHLORIDE
     Dosage: UNK
  7. DEROXAT [Concomitant]
     Active Substance: PAROXETINE HYDROCHLORIDE
     Dosage: UNK
  8. POLARAMINE [Concomitant]
     Active Substance: DEXCHLORPHENIRAMINE MALEATE
     Dosage: UNK
  9. TAXOL [Suspect]
     Active Substance: PACLITAXEL
     Dosage: 96 MG, UNK
     Route: 042
     Dates: start: 20180306, end: 20181010

REACTIONS (7)
  - Hepatic pain [Not Recovered/Not Resolved]
  - Malaise [Recovered/Resolved]
  - Vomiting [Unknown]
  - Balance disorder [Recovered/Resolved]
  - Hyperthermia [Recovered/Resolved]
  - Drug hypersensitivity [Recovered/Resolved]
  - Headache [Recovered/Resolved]

NARRATIVE: CASE EVENT DATE: 20180913
